FAERS Safety Report 10412393 (Version 1)
Quarter: 2014Q2

REPORT INFORMATION
  Report Type: Spontaneous
  Country: US (occurrence: None)
  Receive Date: 20140604
  Receipt Date: 20140604
  Transmission Date: 20141212
  Serious: Yes (Other)
  Sender: FDA-Public Use
  Company Number: 20100217CINRY1366

PATIENT
  Sex: Male

DRUGS (3)
  1. CINRYZE [Suspect]
     Indication: HEREDITARY ANGIOEDEMA
  2. CINRYZE [Suspect]
     Indication: PROPHYLAXIS
  3. GLEEVEC (IMATINIB MESILATE) [Concomitant]

REACTIONS (4)
  - Hereditary angioedema [None]
  - Therapy change [None]
  - Therapy change [None]
  - Hereditary angioedema [None]
